FAERS Safety Report 16462321 (Version 2)
Quarter: 2020Q1

REPORT INFORMATION
  Report Type: Report from Study
  Country: US (occurrence: US)
  Receive Date: 20190621
  Receipt Date: 20200331
  Transmission Date: 20200409
  Serious: Yes (Other)
  Sender: FDA-Public Use
  Company Number: US-TEVA-2019-US-1063556

PATIENT
  Age: 58 Year
  Sex: Female

DRUGS (1)
  1. COPAXONE [Suspect]
     Active Substance: GLATIRAMER ACETATE

REACTIONS (22)
  - Head discomfort [Unknown]
  - Muscular weakness [Not Recovered/Not Resolved]
  - Orthosis user [Unknown]
  - Nasopharyngitis [Unknown]
  - Chest discomfort [Unknown]
  - Joint arthroplasty [Unknown]
  - Flushing [Unknown]
  - Injection site pruritus [Unknown]
  - Acquired claw toe [Unknown]
  - Seasonal allergy [Unknown]
  - Cough [Unknown]
  - Hemiparesis [Not Recovered/Not Resolved]
  - Peroneal nerve palsy [Unknown]
  - Injection site mass [Unknown]
  - Sluggishness [Unknown]
  - Throat tightness [Unknown]
  - Back pain [Unknown]
  - Muscle spasms [Not Recovered/Not Resolved]
  - Walking aid user [Unknown]
  - Chills [Unknown]
  - Muscle spasms [Unknown]
  - Upper respiratory tract infection [Unknown]

NARRATIVE: CASE EVENT DATE: 201912
